FAERS Safety Report 17575253 (Version 8)
Quarter: 2021Q4

REPORT INFORMATION
  Report Type: Spontaneous
  Country: US (occurrence: US)
  Receive Date: 20200324
  Receipt Date: 20211229
  Transmission Date: 20220304
  Serious: Yes (Hospitalization, Other)
  Sender: FDA-Public Use
  Company Number: US-GILEAD-2020-0455974

PATIENT
  Sex: Male
  Weight: 83 kg

DRUGS (52)
  1. VIREAD [Suspect]
     Active Substance: TENOFOVIR DISOPROXIL FUMARATE
     Indication: HIV infection
     Dosage: UNK
     Route: 048
     Dates: start: 20060110, end: 20090220
  2. VIREAD [Suspect]
     Active Substance: TENOFOVIR DISOPROXIL FUMARATE
     Dosage: UNK
     Route: 065
     Dates: start: 200101, end: 20090220
  3. TRUVADA [Suspect]
     Active Substance: EMTRICITABINE\TENOFOVIR DISOPROXIL FUMARATE
     Indication: HIV infection
     Dosage: UNK
     Route: 048
     Dates: start: 2001
  4. TRUVADA [Suspect]
     Active Substance: EMTRICITABINE\TENOFOVIR DISOPROXIL FUMARATE
     Dosage: UNK
     Route: 065
     Dates: start: 201305, end: 201809
  5. TRUVADA [Suspect]
     Active Substance: EMTRICITABINE\TENOFOVIR DISOPROXIL FUMARATE
     Dosage: UNK
     Route: 065
     Dates: start: 200903, end: 201809
  6. TRUVADA [Suspect]
     Active Substance: EMTRICITABINE\TENOFOVIR DISOPROXIL FUMARATE
     Dosage: UNK
     Route: 065
     Dates: start: 200903, end: 201807
  7. COMBIVIR [Concomitant]
     Active Substance: LAMIVUDINE\ZIDOVUDINE
  8. KALETRA [Concomitant]
     Active Substance: LOPINAVIR\RITONAVIR
  9. NORVIR [Concomitant]
     Active Substance: RITONAVIR
  10. PREZISTA [Concomitant]
     Active Substance: DARUNAVIR ETHANOLATE
  11. TRIUMEQ [Concomitant]
     Active Substance: ABACAVIR SULFATE\DOLUTEGRAVIR SODIUM\LAMIVUDINE
  12. ATORVASTATIN [Concomitant]
     Active Substance: ATORVASTATIN
  13. OMEPRAZOLE [Concomitant]
     Active Substance: OMEPRAZOLE
  14. JANUMET [Concomitant]
     Active Substance: METFORMIN HYDROCHLORIDE\SITAGLIPTIN PHOSPHATE
  15. AMIBID LA [Concomitant]
  16. AMOXICILLIN [Concomitant]
     Active Substance: AMOXICILLIN
  17. BACLOFEN [Concomitant]
     Active Substance: BACLOFEN
  18. BENZONATATE [Concomitant]
     Active Substance: BENZONATATE
  19. CRESTOR [Concomitant]
     Active Substance: ROSUVASTATIN CALCIUM
  20. CYCLOBENZAPRINE [Concomitant]
     Active Substance: CYCLOBENZAPRINE
  21. FEXOFENADINE [Concomitant]
     Active Substance: FEXOFENADINE HYDROCHLORIDE
  22. FLOVENT [Concomitant]
     Active Substance: FLUTICASONE PROPIONATE
  23. FOSINOPRIL [Concomitant]
     Active Substance: FOSINOPRIL
  24. GUAIFENESIN\PSEUDOEPHEDRINE HYDROCHLORIDE [Concomitant]
     Active Substance: GUAIFENESIN\PSEUDOEPHEDRINE HYDROCHLORIDE
  25. ACETAMINOPHEN\HYDROCODONE [Concomitant]
     Active Substance: ACETAMINOPHEN\HYDROCODONE
  26. IBUPROFEN [Concomitant]
     Active Substance: IBUPROFEN
  27. LEVITRA [Concomitant]
     Active Substance: VARDENAFIL HYDROCHLORIDE
  28. LORATADINE [Concomitant]
     Active Substance: LORATADINE
  29. LUNESTA [Concomitant]
     Active Substance: ESZOPICLONE
  30. MUPIROCIN [Concomitant]
     Active Substance: MUPIROCIN
  31. NEXIUM I.V. [Concomitant]
     Active Substance: ESOMEPRAZOLE SODIUM
  32. TRAMADOL [Concomitant]
     Active Substance: TRAMADOL
  33. TRIAMCINOLONE [Concomitant]
     Active Substance: TRIAMCINOLONE
  34. OMEPRAZOLE [Concomitant]
     Active Substance: OMEPRAZOLE
  35. ZITHROMAX [Concomitant]
     Active Substance: AZITHROMYCIN DIHYDRATE
  36. ZOLPIDEM [Concomitant]
     Active Substance: ZOLPIDEM TARTRATE
  37. INFLUENZA VIRUS VACCINE [Concomitant]
     Active Substance: INFLUENZA VIRUS VACCINE
  38. RANITIDINE [Concomitant]
     Active Substance: RANITIDINE
  39. SPIRIVA [Concomitant]
     Active Substance: TIOTROPIUM BROMIDE MONOHYDRATE
  40. ESOMEPRAZOLE MAGNESIUM [Concomitant]
     Active Substance: ESOMEPRAZOLE MAGNESIUM
  41. VENTOLIN [Concomitant]
     Active Substance: ALBUTEROL SULFATE
  42. ALBUTEROL [Concomitant]
     Active Substance: ALBUTEROL
  43. VIAGRA [Concomitant]
     Active Substance: SILDENAFIL CITRATE
  44. FLUCONAZOLE [Concomitant]
     Active Substance: FLUCONAZOLE
  45. ASPIRIN [Concomitant]
     Active Substance: ASPIRIN
  46. MOXIFLOXACIN [Concomitant]
     Active Substance: MOXIFLOXACIN
  47. DOCUSATE SODIUM [Concomitant]
     Active Substance: DOCUSATE SODIUM
  48. AUGMENTIN [Concomitant]
     Active Substance: AMOXICILLIN\CLAVULANATE POTASSIUM
  49. MUCINEX [Concomitant]
     Active Substance: GUAIFENESIN
  50. KETOCONAZOLE [Concomitant]
     Active Substance: KETOCONAZOLE
  51. LIDOCAINE [Concomitant]
     Active Substance: LIDOCAINE
  52. NEOMYCIN AND POLYMYXIN B SULFATES AND HYDROCORTISONE [Concomitant]
     Active Substance: HYDROCORTISONE\NEOMYCIN SULFATE\POLYMYXIN B SULFATE

REACTIONS (23)
  - Osteoporosis [Not Recovered/Not Resolved]
  - Multiple fractures [Recovered/Resolved]
  - Hand fracture [Unknown]
  - Osteoporosis [Not Recovered/Not Resolved]
  - Liver injury [Unknown]
  - Bipolar disorder [Not Recovered/Not Resolved]
  - Suicidal ideation [Not Recovered/Not Resolved]
  - Facial bones fracture [Unknown]
  - Acute kidney injury [Unknown]
  - Joint range of motion decreased [Not Recovered/Not Resolved]
  - Dysgraphia [Not Recovered/Not Resolved]
  - Bone density decreased [Not Recovered/Not Resolved]
  - Fracture [Not Recovered/Not Resolved]
  - Depression [Not Recovered/Not Resolved]
  - Pain [Not Recovered/Not Resolved]
  - Emotional distress [Not Recovered/Not Resolved]
  - Anxiety [Not Recovered/Not Resolved]
  - Anhedonia [Not Recovered/Not Resolved]
  - Economic problem [Not Recovered/Not Resolved]
  - Hand fracture [Recovered/Resolved]
  - Fall [Recovered/Resolved]
  - Intervertebral disc degeneration [Unknown]
  - Tooth extraction [Unknown]

NARRATIVE: CASE EVENT DATE: 20030101
